FAERS Safety Report 16714903 (Version 1)
Quarter: 2019Q3

REPORT INFORMATION
  Report Type: Spontaneous
  Country: US (occurrence: US)
  Receive Date: 20190702
  Receipt Date: 20190702
  Transmission Date: 20191005
  Serious: Yes (Other)
  Sender: FDA-Public Use
  Company Number: None

PATIENT
  Age: 79 Year
  Sex: Female

DRUGS (1)
  1. LEVOTHYROXINE 0.075 MG (75 MCG) TABS [Suspect]
     Active Substance: LEVOTHYROXINE
     Indication: HYPERTHYROIDISM
     Dosage: ?          OTHER DOSE:0.275MG;?
     Route: 048
     Dates: start: 20190519

REACTIONS (7)
  - Decreased appetite [None]
  - Hyperhidrosis [None]
  - Nausea [None]
  - Weight decreased [None]
  - Temperature intolerance [None]
  - Tremor [None]
  - Asthenia [None]
